FAERS Safety Report 11982934 (Version 3)
Quarter: 2016Q4

REPORT INFORMATION
  Report Type: Spontaneous
  Country: JP (occurrence: JP)
  Receive Date: 20160201
  Receipt Date: 20161024
  Transmission Date: 20170206
  Serious: Yes (Other)
  Sender: FDA-Public Use
  Company Number: JP-PFIZER INC-2015260290

PATIENT
  Age: 80 Year
  Sex: Female

DRUGS (1)
  1. SUTENT [Suspect]
     Active Substance: SUNITINIB MALATE
     Dosage: 25 MG, DAILY 2-WEEK ADMINISTRATION AND ONE-WEEK INTERRUPTION PERIOD
     Route: 048
     Dates: start: 201507, end: 2015

REACTIONS (8)
  - Thyroid disorder [Recovered/Resolved]
  - Diarrhoea [Unknown]
  - Glomerular filtration rate increased [Recovered/Resolved]
  - Palmar-plantar erythrodysaesthesia syndrome [Recovered/Resolved]
  - Stomatitis [Recovering/Resolving]
  - Platelet count decreased [Recovered/Resolved]
  - Neoplasm progression [Unknown]
  - Delirium [Unknown]

NARRATIVE: CASE EVENT DATE: 20150803
